FAERS Safety Report 7058578-8 (Version None)
Quarter: 2010Q4

REPORT INFORMATION
  Report Type: 
  Country: None (occurrence: None)
  Receive Date: 20101022
  Receipt Date: 20101020
  Transmission Date: 20110411
  Serious: Yes (Other)
  Sender: FDA-Public Use
  Company Number: A0882366A

PATIENT
  Age: 70 Year
  Sex: Female

DRUGS (5)
  1. ADVAIR DISKUS 100/50 [Suspect]
     Indication: ASTHMA
     Dosage: 1PUFF TWICE PER DAY
     Route: 055
     Dates: start: 20060101
  2. SINGULAIR [Concomitant]
  3. AVAPRO [Concomitant]
  4. SIMVASTATIN [Concomitant]
  5. ZOCOR [Concomitant]

REACTIONS (4)
  - DIZZINESS [None]
  - PARAESTHESIA [None]
  - PRODUCT QUALITY ISSUE [None]
  - SYNCOPE [None]
